FAERS Safety Report 17005134 (Version 1)
Quarter: 2019Q4

REPORT INFORMATION
  Report Type: Spontaneous
  Country: US (occurrence: US)
  Receive Date: 20190926
  Receipt Date: 20190926
  Transmission Date: 20200122
  Serious: Yes (Other)
  Sender: FDA-Public Use
  Company Number: None

PATIENT
  Age: 38 Year
  Sex: Female
  Weight: 52.16 kg

DRUGS (2)
  1. VENLAFAXINE ER 75MG [Suspect]
     Active Substance: VENLAFAXINE HYDROCHLORIDE
     Indication: MAJOR DEPRESSION
     Route: 048
     Dates: start: 2002
  2. VENLAFAXINE [Suspect]
     Active Substance: VENLAFAXINE HYDROCHLORIDE
     Dosage: ?          OTHER FREQUENCY:1XDAY;?
     Route: 048

REACTIONS (11)
  - Musculoskeletal stiffness [None]
  - Palpitations [None]
  - Apathy [None]
  - Withdrawal syndrome [None]
  - Headache [None]
  - Sexual dysfunction [None]
  - Fatigue [None]
  - Gastrointestinal disorder [None]
  - Dizziness [None]
  - Flushing [None]
  - Pain [None]

NARRATIVE: CASE EVENT DATE: 20190101
